FAERS Safety Report 5538257-6 (Version None)
Quarter: 2007Q4

REPORT INFORMATION
  Report Type: 
  Country: None (occurrence: None)
  Receive Date: 20071123
  Receipt Date: 20070730
  Transmission Date: 20080405
  Serious: Yes (Hospitalization, Disabling, Other)
  Sender: FDA-Public Use
  Company Number: US-JNJFOC-20070702793

PATIENT
  Age: 61 Year
  Sex: Male

DRUGS (2)
  1. LEVAQUIN [Suspect]
     Indication: BRONCHITIS
     Dosage: 750 MG, 2 IN 1 DAY, ORAL
     Route: 048
     Dates: start: 20070615, end: 20070630
  2. PREDNISONE                  (PREDNISONE) UNSPECIFIED [Concomitant]

REACTIONS (1)
  - TENDON RUPTURE [None]
